FAERS Safety Report 10505192 (Version 2)
Quarter: 2014Q3

REPORT INFORMATION
  Report Type: Spontaneous
  Country: US (occurrence: None)
  Receive Date: 20140915
  Receipt Date: 20140915
  Transmission Date: 20150326
  Serious: Yes (Death)
  Sender: FDA-Public Use
  Company Number: 2012SGN00038

PATIENT
  Age: 45 Year
  Sex: Male
  Weight: 71.7 kg

DRUGS (3)
  1. ADCETRIS [Suspect]
     Active Substance: BRENTUXIMAB VEDOTIN
     Indication: ANAPLASTIC LARGE-CELL LYMPHOMA
     Dosage: 100 MG, Q21D?
     Dates: start: 20111110, end: 20111201
  2. LOVENOX [Concomitant]
     Active Substance: ENOXAPARIN SODIUM
  3. METHOTREXATE (METHOTREXATE SODIUM) [Concomitant]
     Active Substance: METHOTREXATE SODIUM

REACTIONS (5)
  - Impaired healing [None]
  - Disease progression [None]
  - Deep vein thrombosis [None]
  - T-cell lymphoma [None]
  - Neuropathy peripheral [None]

NARRATIVE: CASE EVENT DATE: 20111207
